FAERS Safety Report 4688597-8 (Version None)
Quarter: 2005Q2

REPORT INFORMATION
  Report Type: 
  Country: None (occurrence: None)
  Receive Date: 20050311
  Receipt Date: 20050311
  Transmission Date: 20051028
  Serious: Yes (Other)
  Sender: FDA-Public Use
  Company Number: None

PATIENT
  Sex: Female
  Weight: 62 kg

DRUGS (1)
  1. COUMADIN 3MG (GENERIC) [Suspect]
     Dosage: 3MG ONE DAILY PO
     Route: 048

REACTIONS (1)
  - INTERNATIONAL NORMALISED RATIO ABNORMAL [None]
